FAERS Safety Report 13945210 (Version 1)
Quarter: 2017Q3

REPORT INFORMATION
  Report Type: Spontaneous
  Country: RU (occurrence: RU)
  Receive Date: 20170907
  Receipt Date: 20170907
  Transmission Date: 20171128
  Serious: Yes (Death)
  Sender: FDA-Public Use
  Company Number: RU-BAYER-2017-075048

PATIENT
  Age: 65 Year
  Sex: Female
  Weight: 88 kg

DRUGS (3)
  1. ULTRAVIST [Suspect]
     Active Substance: IOPROMIDE
     Indication: SCAN WITH CONTRAST
     Dosage: 3.845 G, ONCE
     Route: 013
     Dates: start: 20170228, end: 20170228
  2. ULTRAVIST [Suspect]
     Active Substance: IOPROMIDE
     Indication: ARTERIOGRAM
  3. SODIUM CHLORIDE. [Suspect]
     Active Substance: SODIUM CHLORIDE
     Dosage: 0.135 G, UNK
     Route: 013
     Dates: start: 20170228, end: 20170228

REACTIONS (12)
  - Bradycardia [Fatal]
  - Dyspnoea [Fatal]
  - Dizziness [Fatal]
  - Visual acuity reduced [Fatal]
  - Ventricular tachycardia [Fatal]
  - Ventricular fibrillation [Fatal]
  - Loss of consciousness [Fatal]
  - Tinnitus [Fatal]
  - Atrioventricular block complete [Fatal]
  - Apnoea [Fatal]
  - Ventricular arrhythmia [Fatal]
  - Generalised tonic-clonic seizure [Fatal]

NARRATIVE: CASE EVENT DATE: 20170228
